FAERS Safety Report 4320523-3 (Version None)
Quarter: 2004Q1

REPORT INFORMATION
  Report Type: 
  Country: None (occurrence: None)
  Receive Date: 20040315
  Receipt Date: 20040213
  Transmission Date: 20041129
  Serious: Yes (Other)
  Sender: FDA-Public Use
  Company Number: 2004195069US

PATIENT
  Age: 54 Year
  Sex: Female

DRUGS (2)
  1. BEXTRA [Suspect]
     Indication: BACK PAIN
     Dosage: 10 MG, QD
  2. LEVOXYL [Concomitant]

REACTIONS (1)
  - VASCULITIC RASH [None]
